FAERS Safety Report 9432874 (Version 1)
Quarter: 2013Q3

REPORT INFORMATION
  Report Type: Report from Study
  Country: NL (occurrence: NL)
  Receive Date: 20130731
  Receipt Date: 20130731
  Transmission Date: 20140515
  Serious: Yes (Hospitalization)
  Sender: FDA-Public Use
  Company Number: PHHY2013NL069120

PATIENT
  Age: 63 Year
  Sex: Female

DRUGS (4)
  1. ZOMETA [Suspect]
     Indication: LUNG CANCER METASTATIC
     Dosage: 4 MG PER 100 ML ONCE PER 3 WEEKS
     Route: 041
  2. ZOMETA [Suspect]
     Dosage: 4 MG PER 100 ML ONCE PER 3 WEEKS
     Route: 041
     Dates: start: 20121101
  3. ZOMETA [Suspect]
     Dosage: 4 MG PER 100 ML ONCE PER 3 WEEKS
     Route: 041
     Dates: start: 20130613
  4. ZOMETA [Suspect]
     Dosage: 4 MG PER 100 ML ONCE PER 3 WEEKS
     Route: 041
     Dates: start: 20130705

REACTIONS (2)
  - Back pain [Recovering/Resolving]
  - Muscular weakness [Unknown]
